FAERS Safety Report 15821977 (Version 1)
Quarter: 2019Q1

REPORT INFORMATION
  Report Type: Spontaneous
  Country: US (occurrence: US)
  Receive Date: 20190114
  Receipt Date: 20190114
  Transmission Date: 20190417
  Serious: Yes (Life-Threatening, Hospitalization)
  Sender: FDA-Public Use
  Company Number: None

PATIENT
  Age: 73 Year
  Sex: Female
  Weight: 85.28 kg

DRUGS (1)
  1. MACRODANTIN [Suspect]
     Active Substance: NITROFURANTOIN

REACTIONS (8)
  - Myocardial infarction [None]
  - Hyperhidrosis [None]
  - Dizziness [None]
  - Vomiting [None]
  - Urticaria [None]
  - Cystitis [None]
  - Arterial disorder [None]
  - Anaphylactic shock [None]

NARRATIVE: CASE EVENT DATE: 20181207
